FAERS Safety Report 10688055 (Version 1)
Quarter: 2014Q4

REPORT INFORMATION
  Report Type: Spontaneous
  Country: IN (occurrence: None)
  Receive Date: 20141231
  Receipt Date: 20141231
  Transmission Date: 20150529
  Serious: Yes (Other)
  Sender: FDA-Public Use
  Company Number: UCM201412-000258

PATIENT
  Age: 49 Year
  Sex: Male

DRUGS (1)
  1. TOPIRAMATE. [Suspect]
     Active Substance: TOPIRAMATE
     Indication: ALCOHOLISM

REACTIONS (7)
  - Headache [None]
  - Uveitis [None]
  - Off label use [None]
  - Glaucoma [None]
  - Erythema [None]
  - Lacrimation increased [None]
  - Corneal oedema [None]
